FAERS Safety Report 15118850 (Version 1)
Quarter: 2018Q3

REPORT INFORMATION
  Report Type: Spontaneous
  Country: US (occurrence: US)
  Receive Date: 20180709
  Receipt Date: 20180709
  Transmission Date: 20181010
  Serious: Yes (Death, Other)
  Sender: FDA-Public Use
  Company Number: US-STRIDES ARCOLAB LIMITED-2018SP005530

PATIENT

DRUGS (1)
  1. TACROLIMUS. [Suspect]
     Active Substance: TACROLIMUS
     Indication: RENAL TRANSPLANT
     Dosage: UNK
     Route: 065

REACTIONS (6)
  - Cardiovascular disorder [Fatal]
  - Diabetes mellitus [Unknown]
  - Renal transplant failure [Unknown]
  - Bacterial infection [Unknown]
  - Neoplasm malignant [Unknown]
  - Kidney transplant rejection [Unknown]
